FAERS Safety Report 21515039 (Version 1)
Quarter: 2022Q4

REPORT INFORMATION
  Report Type: Spontaneous
  Country: GB (occurrence: GB)
  Receive Date: 20221027
  Receipt Date: 20221027
  Transmission Date: 20230113
  Serious: Yes (Hospitalization, Other)
  Sender: FDA-Public Use
  Company Number: GB-AUROBINDO-AUR-APL-2022-041861

PATIENT
  Age: 51 Year
  Sex: Male
  Weight: 105 kg

DRUGS (5)
  1. GABAPENTIN [Suspect]
     Active Substance: GABAPENTIN
     Indication: Deep vein thrombosis
     Dosage: 900 MILLIGRAM DAILY; 300 MILLIGRAM, 3 TIMES A DAY
     Route: 048
     Dates: start: 201908, end: 20201102
  2. GABAPENTIN [Suspect]
     Active Substance: GABAPENTIN
     Indication: Pain
     Dosage: 900 MILLIGRAM DAILY; 300 MILLIGRAM, 3 TIMES A DAY,THERAPY DURATION : 1 YEARS
     Route: 048
     Dates: start: 201908, end: 20201102
  3. APIXABAN [Concomitant]
     Active Substance: APIXABAN
     Indication: Product used for unknown indication
     Dosage: 10 MILLIGRAM DAILY; UNIT DOSE : 10 MG, FREQUENCY ; 1 , FREQUENCY TIME : 1 DAYS, STRENGTH : 5 MG
     Route: 048
     Dates: start: 2019
  4. OMEPRAZOLE [Concomitant]
     Active Substance: OMEPRAZOLE
     Indication: Product used for unknown indication
     Dosage: 8 DOSAGE FORMS DAILY; 4 DOSAGE FORM, TWO TIMES A DAY
     Route: 048
     Dates: start: 2019
  5. TRAMADOL [Concomitant]
     Active Substance: TRAMADOL
     Indication: Product used for unknown indication
     Dosage: UNK
     Route: 048
     Dates: start: 2019

REACTIONS (2)
  - Pancreatitis acute [Recovered/Resolved]
  - Cholecystectomy [Recovered/Resolved]

NARRATIVE: CASE EVENT DATE: 20200101
